FAERS Safety Report 11212485 (Version 5)
Quarter: 2015Q4

REPORT INFORMATION
  Report Type: Spontaneous
  Country: US (occurrence: US)
  Receive Date: 20150623
  Receipt Date: 20151201
  Transmission Date: 20160304
  Serious: No
  Sender: FDA-Public Use
  Company Number: US-ELI_LILLY_AND_COMPANY-US201506005377

PATIENT
  Age: 63 Year
  Sex: Female

DRUGS (6)
  1. FORTEO [Suspect]
     Active Substance: TERIPARATIDE
     Indication: OSTEOPOROSIS
     Dosage: UNK UNK, UNKNOWN
     Route: 065
     Dates: start: 20150528
  2. FORTEO [Suspect]
     Active Substance: TERIPARATIDE
     Dosage: UNK, UNKNOWN
     Route: 065
  3. SYNTHROID [Concomitant]
     Active Substance: LEVOTHYROXINE SODIUM
  4. FORTEO [Suspect]
     Active Substance: TERIPARATIDE
     Dosage: UNK, QD
     Route: 065
  5. FORTEO [Suspect]
     Active Substance: TERIPARATIDE
     Dosage: UNK, QD
     Route: 065
  6. CALCIUM [Concomitant]
     Active Substance: CALCIUM

REACTIONS (11)
  - Rash [Unknown]
  - Injection site pain [Unknown]
  - Blood calcium increased [Not Recovered/Not Resolved]
  - Injection site haemorrhage [Unknown]
  - Injection site mass [Unknown]
  - Eye haemorrhage [Unknown]
  - Injection site erythema [Unknown]
  - Injection site rash [Unknown]
  - Laryngitis [Unknown]
  - Rash macular [Unknown]
  - Incorrect product storage [Unknown]

NARRATIVE: CASE EVENT DATE: 20150720
